FAERS Safety Report 4335085-4 (Version None)
Quarter: 2004Q2

REPORT INFORMATION
  Report Type: 
  Country: None (occurrence: None)
  Receive Date: 20040405
  Receipt Date: 20040323
  Transmission Date: 20050107
  Serious: Yes (Death)
  Sender: FDA-Public Use
  Company Number: JP-JNJFOC-20040305730

PATIENT
  Age: 53 Year
  Sex: Female

DRUGS (10)
  1. FENTANYL [Suspect]
     Indication: CANCER PAIN
     Dosage: SEE IMAGE
     Route: 062
     Dates: start: 20040109, end: 20040116
  2. FENTANYL [Suspect]
     Indication: CANCER PAIN
     Dosage: SEE IMAGE
     Route: 062
     Dates: start: 20040115, end: 20040123
  3. FENTANYL [Suspect]
     Indication: CANCER PAIN
     Dosage: SEE IMAGE
     Route: 062
     Dates: start: 20040126
  4. FUROSEMIDE [Concomitant]
  5. SPIRONOLACTONE [Concomitant]
  6. SENNOSIDE (ALL OTHER THERAPEUTIC PRODUCTS) [Concomitant]
  7. REBAMIPIDE (REBAMIPIDE) [Concomitant]
  8. URSODESOXYCHOLIC ACID (URSODEOXYCHOLIC ACID) [Concomitant]
  9. HALOPERIDOL [Concomitant]
  10. DICLOFENAC SODIUM [Concomitant]

REACTIONS (1)
  - DEATH [None]
